FAERS Safety Report 12873129 (Version 1)
Quarter: 2016Q4

REPORT INFORMATION
  Report Type: Other
  Country: US (occurrence: US)
  Receive Date: 20161021
  Receipt Date: 20161021
  Transmission Date: 20170207
  Serious: Yes (Life-Threatening, Hospitalization, Other)
  Sender: FDA-Public Use
  Company Number: US-CATALENT PHARMA SOLUTIONS-CAT-000162-2016

PATIENT
  Age: 12 Year
  Sex: Male

DRUGS (9)
  1. METHYLPHENIDATE ER [Suspect]
     Active Substance: METHYLPHENIDATE
     Indication: PRODUCT USED FOR UNKNOWN INDICATION
     Dosage: 36 MG, QD
     Route: 065
  2. RISPERIDONE. [Suspect]
     Active Substance: RISPERIDONE
     Dosage: 1 MG, AT BEDTIME
     Route: 065
  3. PRAMIPEXOLE. [Suspect]
     Active Substance: PRAMIPEXOLE
     Indication: PRODUCT USED FOR UNKNOWN INDICATION
     Dosage: 0.125 MG, AT BEDTIME
     Route: 065
  4. VALPROIC ACID. [Suspect]
     Active Substance: VALPROIC ACID
     Indication: PRODUCT USED FOR UNKNOWN INDICATION
     Dosage: 375 MG, QD
     Route: 065
  5. VALPROIC ACID. [Suspect]
     Active Substance: VALPROIC ACID
     Dosage: 500 MG, AT BEDTIME
     Route: 065
  6. RISPERIDONE. [Suspect]
     Active Substance: RISPERIDONE
     Dosage: 0.5 MG, QD
  7. RISPERIDONE. [Suspect]
     Active Substance: RISPERIDONE
     Indication: PRODUCT USED FOR UNKNOWN INDICATION
     Dosage: 0.5 MG, BID
     Route: 065
  8. MELATONIN [Concomitant]
     Active Substance: MELATONIN
     Indication: SLEEP DISORDER
     Dosage: 5 MG, AT BEDTIME
     Route: 065
  9. PAROXETINE. [Suspect]
     Active Substance: PAROXETINE
     Indication: PRODUCT USED FOR UNKNOWN INDICATION
     Dosage: 40 MG, QD
     Route: 065

REACTIONS (23)
  - Gait disturbance [Unknown]
  - Electroencephalogram abnormal [Unknown]
  - Chills [Unknown]
  - Neuroleptic malignant syndrome [Unknown]
  - Myoclonus [Unknown]
  - Muscle rigidity [Unknown]
  - Disorientation [Unknown]
  - Dysphagia [Unknown]
  - Dyskinesia [Unknown]
  - Unresponsive to stimuli [Unknown]
  - Mental disorder [Unknown]
  - Salivary hypersecretion [Unknown]
  - Dysarthria [Unknown]
  - Aphasia [Unknown]
  - Tachypnoea [Unknown]
  - Decerebrate posture [Unknown]
  - Tremor [Unknown]
  - Opisthotonus [Unknown]
  - Confusional state [Unknown]
  - Somnolence [Unknown]
  - Agitation [Unknown]
  - Hyperhidrosis [Unknown]
  - Tachycardia [Unknown]
